FAERS Safety Report 12800014 (Version 2)
Quarter: 2016Q4

REPORT INFORMATION
  Report Type: Report from Study
  Country: US (occurrence: US)
  Receive Date: 20160930
  Receipt Date: 20161215
  Transmission Date: 20170207
  Serious: Yes (Hospitalization, Other)
  Sender: FDA-Public Use
  Company Number: US-SA-2015SA069156

PATIENT
  Age: 47 Year
  Sex: Female

DRUGS (4)
  1. LEMTRADA [Suspect]
     Active Substance: ALEMTUZUMAB
     Indication: MULTIPLE SCLEROSIS
     Route: 041
     Dates: start: 20160516, end: 20160518
  2. LEMTRADA [Suspect]
     Active Substance: ALEMTUZUMAB
     Indication: MULTIPLE SCLEROSIS
     Route: 041
     Dates: start: 20150511, end: 20150515
  3. LIPITOR [Concomitant]
     Active Substance: ATORVASTATIN CALCIUM
  4. WELLBUTRIN [Suspect]
     Active Substance: BUPROPION HYDROCHLORIDE
     Route: 065

REACTIONS (11)
  - Rash generalised [Recovering/Resolving]
  - Affective disorder [Unknown]
  - Neoplasm malignant [Unknown]
  - Infusion related reaction [Unknown]
  - Actinic keratosis [Recovered/Resolved]
  - Autoimmune disorder [Unknown]
  - Hallucination [Recovered/Resolved]
  - Cellulitis [Recovered/Resolved]
  - Hordeolum [Recovering/Resolving]
  - Urticaria [Unknown]
  - Hepatic enzyme increased [Recovered/Resolved]

NARRATIVE: CASE EVENT DATE: 2015
